FAERS Safety Report 6130625-7 (Version None)
Quarter: 2009Q1

REPORT INFORMATION
  Report Type: 
  Country: None (occurrence: None)
  Receive Date: 20090323
  Receipt Date: 20090305
  Transmission Date: 20090719
  Serious: Yes (Hospitalization)
  Sender: FDA-Public Use
  Company Number: 8043831

PATIENT
  Age: 58 Year
  Sex: Female

DRUGS (17)
  1. KEPPRA [Suspect]
     Dosage: PO
     Route: 048
     Dates: end: 20081101
  2. INSULIN [Concomitant]
  3. ARANESP [Concomitant]
  4. SANDIMMUNE [Concomitant]
  5. TRAMADOL [Concomitant]
  6. ACETAMINOPHEN [Concomitant]
  7. LAXOBERAL [Concomitant]
  8. KALEORID [Concomitant]
  9. ETALPHA [Concomitant]
  10. GAVISCON [Concomitant]
  11. OMEPRAZOLE [Concomitant]
  12. OXASCAND [Concomitant]
  13. ZOLPIDEM [Concomitant]
  14. FRAGMIN [Concomitant]
  15. LAKTULOS [Concomitant]
  16. CALCITUGG [Concomitant]
  17. LANTUS [Concomitant]

REACTIONS (10)
  - ABDOMINAL PAIN [None]
  - ASTHENIA [None]
  - DIALYSIS [None]
  - GENERAL PHYSICAL CONDITION ABNORMAL [None]
  - HYPOGLYCAEMIA [None]
  - MUSCULOSKELETAL PAIN [None]
  - MYALGIA [None]
  - MYOGLOBINAEMIA [None]
  - NECK PAIN [None]
  - PAIN [None]
